FAERS Safety Report 22596753 (Version 1)
Quarter: 2023Q2

REPORT INFORMATION
  Report Type: Spontaneous
  Country: IT (occurrence: IT)
  Receive Date: 20230613
  Receipt Date: 20230613
  Transmission Date: 20230722
  Serious: Yes (Hospitalization)
  Sender: FDA-Public Use
  Company Number: IT-BAUSCH-BL-2023-008890

PATIENT
  Age: 75 Year
  Sex: Male

DRUGS (5)
  1. FLUOROURACIL [Suspect]
     Active Substance: FLUOROURACIL
     Indication: Adenocarcinoma
     Dosage: FOUR CYCLES; FIRST CYCLE ON 50%, SECOND AND THIRD CYCLES ON 100%, FOURTH CYCLE ON 20% 5-FU
     Route: 065
  2. LEUCOVORIN [Suspect]
     Active Substance: LEUCOVORIN
     Indication: Adenocarcinoma
     Dosage: FOUR CYCLES PRE-SURGERY AND POST-SURGERY WERE SCHEDULED
     Route: 065
  3. OXALIPLATIN [Suspect]
     Active Substance: OXALIPLATIN
     Indication: Adenocarcinoma
     Dosage: FOUR CYCLES PRE-SURGERY AND POST-SURGERY WERE SCHEDULED
     Route: 065
  4. DOCETAXEL [Suspect]
     Active Substance: DOCETAXEL
     Indication: Adenocarcinoma
     Dosage: FOUR CYCLES PRE-SURGERY AND POST-SURGERY WERE SCHEDULED
     Route: 065
  5. FILGRASTIM [Concomitant]
     Active Substance: FILGRASTIM
     Indication: Prophylaxis
     Route: 065

REACTIONS (2)
  - Mucosal inflammation [Recovered/Resolved]
  - Oropharyngeal candidiasis [Recovered/Resolved]
